FAERS Safety Report 17840209 (Version 1)
Quarter: 2020Q2

REPORT INFORMATION
  Report Type: Spontaneous
  Country: JP (occurrence: JP)
  Receive Date: 20200529
  Receipt Date: 20200529
  Transmission Date: 20200714
  Serious: Yes (Hospitalization)
  Sender: FDA-Public Use
  Company Number: JP-TEVA-2020-JP-1241986

PATIENT
  Age: 51 Year
  Sex: Female

DRUGS (6)
  1. RIOCIGUAT. [Suspect]
     Active Substance: RIOCIGUAT
     Indication: PULMONARY ARTERIAL HYPERTENSION
     Route: 065
  2. TADALAFIL. [Suspect]
     Active Substance: TADALAFIL
     Indication: PULMONARY ARTERIAL HYPERTENSION
     Route: 065
  3. DOBUTAMINE [Concomitant]
     Active Substance: DOBUTAMINE HYDROCHLORIDE
     Route: 065
  4. PROSTAGLANDIN I2 [Suspect]
     Active Substance: EPOPROSTENOL
     Indication: PULMONARY ARTERIAL HYPERTENSION
     Dosage: DOSE: 0.25NG/KG/MIN; THE DOSE WAS SUBSEQUENTLY INCREASED DAILY BY 0.5 NG/KG/MIN. WHEN THE DOSE EX...
     Route: 041
  5. PROSTAGLANDIN I2 [Suspect]
     Active Substance: EPOPROSTENOL
     Indication: PULMONARY ARTERIAL HYPERTENSION
     Dosage: 34.4NG/KG/MIN
     Route: 041
  6. MACITENTAN [Suspect]
     Active Substance: MACITENTAN
     Indication: PULMONARY ARTERIAL HYPERTENSION
     Route: 065

REACTIONS (9)
  - Hepatosplenomegaly [Unknown]
  - Ascites [Unknown]
  - Drug-induced liver injury [Unknown]
  - Thrombocytopenia [Unknown]
  - Lip swelling [Unknown]
  - Anaemia [Unknown]
  - Rash [Unknown]
  - Diarrhoea [Unknown]
  - Pruritus [Unknown]
